FAERS Safety Report 6241002-2 (Version None)
Quarter: 2009Q2

REPORT INFORMATION
  Report Type: 
  Country: None (occurrence: None)
  Receive Date: 20090623
  Receipt Date: 20090612
  Transmission Date: 20091009
  Serious: Yes (Hospitalization)
  Sender: FDA-Public Use
  Company Number: B0576994A

PATIENT
  Sex: Female
  Weight: 93.9 kg

DRUGS (2)
  1. LAPATINIB [Suspect]
     Indication: BREAST CANCER
     Dosage: 750MG PER DAY
     Route: 048
     Dates: start: 20080122
  2. CAPECITABINE [Suspect]
     Dosage: 750MGM2 TWICE PER DAY
     Route: 042
     Dates: start: 20080122

REACTIONS (3)
  - CENTRAL LINE INFECTION [None]
  - PYREXIA [None]
  - SEPSIS [None]
